FAERS Safety Report 6306894-7 (Version None)
Quarter: 2009Q3

REPORT INFORMATION
  Report Type: 
  Country: None (occurrence: None)
  Receive Date: 20090811
  Receipt Date: 20090811
  Transmission Date: 20100115
  Serious: Yes (Life-Threatening, Hospitalization)
  Sender: FDA-Public Use
  Company Number: None

PATIENT
  Age: 26 Year
  Sex: Female
  Weight: 118.8424 kg

DRUGS (1)
  1. BACTRIM [Suspect]
     Indication: URINARY TRACT INFECTION
     Dosage: DS TWICE DAILY PO
     Route: 048
     Dates: start: 20090621, end: 20090802

REACTIONS (8)
  - AGRANULOCYTOSIS [None]
  - CHILLS [None]
  - FEBRILE NEUTROPENIA [None]
  - FEELING COLD [None]
  - MALAISE [None]
  - NAUSEA [None]
  - PYREXIA [None]
  - TREMOR [None]
